FAERS Safety Report 9626922 (Version 1)
Quarter: 2013Q4

REPORT INFORMATION
  Report Type: Spontaneous
  Country: US (occurrence: US)
  Receive Date: 20131016
  Receipt Date: 20131016
  Transmission Date: 20140711
  Serious: Yes (Hospitalization, Other)
  Sender: FDA-Public Use
  Company Number: US-AMGEN-USASP2013071537

PATIENT
  Age: 0 Day
  Sex: Male

DRUGS (1)
  1. ENBREL [Suspect]
     Indication: PRODUCT USED FOR UNKNOWN INDICATION
     Dosage: 50 MG, QWK
     Route: 064
     Dates: start: 20061201, end: 2009

REACTIONS (3)
  - Umbilical cord around neck [Recovered/Resolved]
  - Foetal heart rate decreased [Recovered/Resolved]
  - Premature baby [Recovered/Resolved]
